FAERS Safety Report 8489021-X (Version None)
Quarter: 2012Q2

REPORT INFORMATION
  Report Type: 
  Country: None (occurrence: None)
  Receive Date: 20120626
  Receipt Date: 20120614
  Transmission Date: 20120825
  Serious: Yes (Other)
  Sender: FDA-Public Use
  Company Number: 2012SP032684

PATIENT
  Age: 58 Year
  Sex: Male
  Weight: 61 kg

DRUGS (14)
  1. PEG-INTRON [Suspect]
     Indication: HEPATITIS C
     Dosage: 1.5 MCG/KG;QW; SC
     Route: 058
     Dates: start: 20120216
  2. CLOBETASOL PROPIONATE [Concomitant]
  3. HIRUDOID [Concomitant]
  4. REBETOL [Suspect]
     Indication: HEPATITIS C
     Dosage: 600 MG;QD;PO 400 MG;QD;PO 200 MG;QD;PO 400 MG;QD;PO
     Route: 048
     Dates: start: 20120323, end: 20120510
  5. REBETOL [Suspect]
     Indication: HEPATITIS C
     Dosage: 600 MG;QD;PO 400 MG;QD;PO 200 MG;QD;PO 400 MG;QD;PO
     Route: 048
     Dates: start: 20120511
  6. REBETOL [Suspect]
     Indication: HEPATITIS C
     Dosage: 600 MG;QD;PO 400 MG;QD;PO 200 MG;QD;PO 400 MG;QD;PO
     Route: 048
     Dates: start: 20120308, end: 20120322
  7. REBETOL [Suspect]
     Indication: HEPATITIS C
     Dosage: 600 MG;QD;PO 400 MG;QD;PO 200 MG;QD;PO 400 MG;QD;PO
     Route: 048
     Dates: start: 20120216, end: 20120307
  8. MIYA BM [Concomitant]
  9. ALBUMIN TANNATE [Concomitant]
  10. TELAVIC (ANTIVIRALS NOS) [Suspect]
     Indication: HEPATITIS C
     Dosage: 2250 MG;QD;PO 1500 MG;QD;PO 750 MG;QD;PO
     Route: 048
     Dates: start: 20120216, end: 20120222
  11. TELAVIC (ANTIVIRALS NOS) [Suspect]
     Indication: HEPATITIS C
     Dosage: 2250 MG;QD;PO 1500 MG;QD;PO 750 MG;QD;PO
     Route: 048
     Dates: start: 20120223, end: 20120314
  12. TELAVIC (ANTIVIRALS NOS) [Suspect]
     Indication: HEPATITIS C
     Dosage: 2250 MG;QD;PO 1500 MG;QD;PO 750 MG;QD;PO
     Route: 048
     Dates: start: 20120315, end: 20120509
  13. CONFATANIN [Concomitant]
  14. ALLOPURINOL [Concomitant]

REACTIONS (18)
  - ABDOMINAL DISCOMFORT [None]
  - DIARRHOEA [None]
  - PANCYTOPENIA [None]
  - NAUSEA [None]
  - STOMATITIS [None]
  - ECZEMA [None]
  - DECREASED APPETITE [None]
  - DRY SKIN [None]
  - ERYTHEMA [None]
  - OROPHARYNGEAL PAIN [None]
  - MALAISE [None]
  - ASTEATOSIS [None]
  - RASH [None]
  - BLOOD CREATININE INCREASED [None]
  - HYPERURICAEMIA [None]
  - PHARYNGITIS [None]
  - HAEMOGLOBIN DECREASED [None]
  - PYREXIA [None]
